FAERS Safety Report 18123139 (Version 1)
Quarter: 2020Q3

REPORT INFORMATION
  Report Type: Spontaneous
  Country: FR (occurrence: FR)
  Receive Date: 20200807
  Receipt Date: 20200807
  Transmission Date: 20201103
  Serious: Yes (Hospitalization)
  Sender: FDA-Public Use
  Company Number: FR-CADILA HEALTHCARE LIMITED-FR-ZYDUS-024271

PATIENT

DRUGS (6)
  1. SERESTA [Suspect]
     Active Substance: OXAZEPAM
     Indication: TOXICITY TO VARIOUS AGENTS
     Dosage: 20 MILLIGRAM,(INTERVAL :1 DAYS)
     Route: 048
     Dates: start: 20180428, end: 20180428
  2. ALCOOL MODIFIE [Suspect]
     Active Substance: ALCOHOL
     Indication: ALCOHOL USE
     Dosage: UNSPECIFIED
     Route: 048
     Dates: start: 20180428
  3. LEVOTHYROX [Suspect]
     Active Substance: LEVOTHYROXINE
     Indication: TOXICITY TO VARIOUS AGENTS
     Dosage: 12 DOSAGE FORM,IN TOTAL,(INTERVAL :1 TOTAL)
     Route: 048
     Dates: start: 20180428, end: 20180428
  4. CANNABIS [Suspect]
     Active Substance: CANNABIS SATIVA SUBSP. INDICA TOP
     Indication: DRUG ABUSE
     Dosage: SOME JOINTS
     Route: 055
  5. VENLAFAXINE [Suspect]
     Active Substance: VENLAFAXINE HYDROCHLORIDE
     Indication: TOXICITY TO VARIOUS AGENTS
     Dosage: 562.5 MILLIGRAM,15 CP ; IN TOTAL,(INTERVAL :1 TOTAL)
     Route: 048
     Dates: start: 20180428, end: 20180428
  6. ZOPICLONE [Suspect]
     Active Substance: ZOPICLONE
     Indication: TOXICITY TO VARIOUS AGENTS
     Dosage: 14 DOSAGE FORM,IN TOTAL,(INTERVAL :1 TOTAL)
     Route: 048
     Dates: start: 20180428, end: 20180428

REACTIONS (4)
  - Drug abuse [Recovering/Resolving]
  - Somnolence [Recovered/Resolved]
  - Vomiting [Recovered/Resolved]
  - Toxicity to various agents [Recovered/Resolved]

NARRATIVE: CASE EVENT DATE: 20180428
